FAERS Safety Report 8246849-9 (Version None)
Quarter: 2012Q1

REPORT INFORMATION
  Report Type: 
  Country: None (occurrence: None)
  Receive Date: 20120327
  Receipt Date: 20120312
  Transmission Date: 20120608
  Serious: No
  Sender: FDA-Public Use
  Company Number: B0789020A

PATIENT
  Age: 55 Year
  Sex: Female

DRUGS (3)
  1. CEFTAZIDIME SODIUM [Suspect]
     Indication: BRONCHITIS
     Dosage: 1 GRAM(S) / PER DAY / INTRAVENOUS
     Route: 042
     Dates: start: 20120311
  2. THIAMINE DISULFIDE [Concomitant]
  3. ASCORBIC ACID [Concomitant]

REACTIONS (3)
  - FACE OEDEMA [None]
  - PRURITUS [None]
  - ANAPHYLACTIC SHOCK [None]
